FAERS Safety Report 6668213-6 (Version None)
Quarter: 2010Q2

REPORT INFORMATION
  Report Type: 
  Country: None (occurrence: None)
  Receive Date: 20100405
  Receipt Date: 20100405
  Transmission Date: 20101027
  Serious: Yes (Life-Threatening, Hospitalization)
  Sender: FDA-Public Use
  Company Number: None

PATIENT
  Sex: Female
  Weight: 76.2043 kg

DRUGS (11)
  1. METHYLIN ER [Suspect]
     Indication: ATTENTION DEFICIT/HYPERACTIVITY DISORDER
     Dosage: 20MG TID PO
     Route: 048
     Dates: start: 20100324, end: 20100329
  2. METHYLIN ER [Suspect]
     Indication: BIPOLAR DISORDER
     Dosage: 20MG TID PO
     Route: 048
     Dates: start: 20100324, end: 20100329
  3. CLONAZEPAM [Concomitant]
  4. URSODIOL [Concomitant]
  5. ATENOLOL [Concomitant]
  6. VOLTAREN [Concomitant]
  7. SINGULAIR [Concomitant]
  8. PERCOCET [Concomitant]
  9. BUPROPION HCL [Concomitant]
  10. PREMARIN [Concomitant]
  11. SPIRIVA [Concomitant]

REACTIONS (8)
  - BIPOLAR DISORDER [None]
  - COMPLETED SUICIDE [None]
  - DEPRESSION [None]
  - DRUG DISPENSING ERROR [None]
  - INSOMNIA [None]
  - MANIA [None]
  - MEDICATION ERROR [None]
  - PRODUCT OUTER PACKAGING ISSUE [None]
